FAERS Safety Report 19173088 (Version 3)
Quarter: 2021Q2

REPORT INFORMATION
  Report Type: Spontaneous
  Country: DK (occurrence: DK)
  Receive Date: 20210423
  Receipt Date: 20210623
  Transmission Date: 20210717
  Serious: Yes (Death, Hospitalization, Other)
  Sender: FDA-Public Use
  Company Number: DK-NOVOPROD-804406

PATIENT
  Sex: Male
  Weight: 81 kg

DRUGS (16)
  1. METFORMIN [Concomitant]
     Active Substance: METFORMIN HYDROCHLORIDE
     Dosage: 1000 MG, BID
     Dates: start: 20151006
  2. KEPPRA [Concomitant]
     Active Substance: LEVETIRACETAM
     Dosage: 500 MG 1/2 X2
     Dates: start: 20210203
  3. PREDNISOLONE. [Concomitant]
     Active Substance: PREDNISOLONE
     Dosage: 25 MG
     Dates: start: 20210205
  4. DIAZEPAM. [Concomitant]
     Active Substance: DIAZEPAM
     Dosage: UNK
     Route: 054
     Dates: start: 20210208
  5. CORODIL [ENALAPRIL MALEATE] [Concomitant]
     Active Substance: ENALAPRIL MALEATE
     Dosage: 20 MG
     Dates: start: 20210208
  6. RYBELSUS [Suspect]
     Active Substance: SEMAGLUTIDE
     Indication: TYPE 2 DIABETES MELLITUS
     Dosage: 14 MG, QD
     Route: 048
     Dates: start: 20200915, end: 20210311
  7. CONTALGIN [Concomitant]
     Active Substance: MORPHINE SULFATE
     Dosage: 5 MG 4X2
     Dates: start: 20210310
  8. SOLU?MEDROL [Concomitant]
     Active Substance: METHYLPREDNISOLONE SODIUM SUCCINATE
     Dosage: 40 MG
     Dates: start: 20210311
  9. VENTOLINE [SALBUTAMOL] [Concomitant]
     Active Substance: ALBUTEROL SULFATE
     Dosage: INHALATION LIQUID AS NEEDED
     Dates: start: 20210224
  10. PANTOPRAZOLE [Concomitant]
     Active Substance: PANTOPRAZOLE
     Dosage: 40 MG, QD
     Dates: start: 20210125
  11. DEPRAKINE [VALPROATE SODIUM] [Concomitant]
     Dosage: 500 MG, BID
     Dates: start: 20210203
  12. SERENASE [HALOPERIDOL] [Concomitant]
     Active Substance: HALOPERIDOL
     Dosage: 5 MG/ML
     Dates: start: 20210311
  13. MIDAZOLAM. [Concomitant]
     Active Substance: MIDAZOLAM
     Dosage: UNK
  14. FUROSEMIDE. [Concomitant]
     Active Substance: FUROSEMIDE
     Dosage: 10 MG/ML
     Dates: start: 20210311
  15. MORPHINE [Concomitant]
     Active Substance: MORPHINE
     Dosage: 10 MG / FLUID INJECTION
     Dates: start: 20210311
  16. PAMOL [Concomitant]
     Active Substance: ACETAMINOPHEN
     Dosage: 500 MG
     Dates: start: 20131014

REACTIONS (2)
  - Product administration error [Unknown]
  - Lung cancer metastatic [Fatal]
